FAERS Safety Report 4560569-3 (Version None)
Quarter: 2005Q1

REPORT INFORMATION
  Report Type: 
  Country: None (occurrence: None)
  Receive Date: 20050125
  Receipt Date: 20050113
  Transmission Date: 20050727
  Serious: Yes (Other)
  Sender: FDA-Public Use
  Company Number: FR-BRISTOL-MYERS SQUIBB COMPANY-12833869

PATIENT
  Age: 74 Year
  Sex: Female

DRUGS (2)
  1. VASTEN [Suspect]
     Indication: HYPERCHOLESTEROLAEMIA
     Route: 048
     Dates: start: 20001201, end: 20010101
  2. ASPEGIC 325 [Concomitant]
     Indication: AMAUROSIS
     Route: 048
     Dates: start: 20010101

REACTIONS (1)
  - PSEUDO LYMPHOMA [None]
